FAERS Safety Report 8327704-2 (Version None)
Quarter: 2012Q2

REPORT INFORMATION
  Report Type: 
  Country: None (occurrence: None)
  Receive Date: 20120502
  Receipt Date: 20120427
  Transmission Date: 20120825
  Serious: Yes (Other)
  Sender: FDA-Public Use
  Company Number: US-PFIZER INC-2011294613

PATIENT
  Sex: Male
  Weight: 72.562 kg

DRUGS (2)
  1. SUTENT [Suspect]
     Indication: METASTATIC RENAL CELL CARCINOMA
     Dosage: 50 MG DAILY, CYCLE 4 WEEKS ON AND 2 OFF
     Dates: start: 20111121
  2. SUTENT [Suspect]
     Indication: RENAL CELL CARCINOMA

REACTIONS (3)
  - ENZYME ABNORMALITY [None]
  - MUSCULOSKELETAL PAIN [None]
  - LIVER FUNCTION TEST ABNORMAL [None]
